FAERS Safety Report 14447140 (Version 3)
Quarter: 2018Q2

REPORT INFORMATION
  Report Type: Spontaneous
  Country: FR (occurrence: FR)
  Receive Date: 20180126
  Receipt Date: 20180410
  Transmission Date: 20180711
  Serious: Yes (Life-Threatening)
  Sender: FDA-Public Use
  Company Number: FR-PFIZER INC-2018031545

PATIENT
  Age: 53 Year
  Sex: Female
  Weight: 50 kg

DRUGS (4)
  1. LYRICA [Suspect]
     Active Substance: PREGABALIN
     Dosage: 2.1 G, UNK
     Route: 048
     Dates: start: 20171007, end: 20171007
  2. BROMAZEPAM [Suspect]
     Active Substance: BROMAZEPAM
     Indication: INTENTIONAL OVERDOSE
     Dosage: 6 MG, 1X/DAY
     Route: 048
     Dates: start: 20171007, end: 20171007
  3. TRAMADOL BASICS [Suspect]
     Active Substance: TRAMADOL
     Indication: INTENTIONAL OVERDOSE
     Dosage: UNK
     Route: 048
     Dates: start: 20171007, end: 20171007
  4. LYRICA [Suspect]
     Active Substance: PREGABALIN
     Indication: INTENTIONAL OVERDOSE
     Dosage: 6 G, UNK
     Route: 048
     Dates: start: 20171007, end: 20171007

REACTIONS (4)
  - Intentional overdose [Recovered/Resolved with Sequelae]
  - Electrocardiogram QT prolonged [Recovered/Resolved]
  - Cardiogenic shock [Recovered/Resolved]
  - Coma [Recovered/Resolved]

NARRATIVE: CASE EVENT DATE: 20171007
